FAERS Safety Report 23611917 (Version 1)
Quarter: 2024Q1

REPORT INFORMATION
  Report Type: Spontaneous
  Country: US (occurrence: US)
  Receive Date: 20240308
  Receipt Date: 20240308
  Transmission Date: 20240410
  Serious: Yes (Other)
  Sender: FDA-Public Use
  Company Number: US-PFIZER INC-202400058681

PATIENT
  Age: 75 Year
  Sex: Female

DRUGS (7)
  1. XELJANZ [Suspect]
     Active Substance: TOFACITINIB CITRATE
     Dosage: 5 MG, 2X/DAY
  2. FOLIC ACID [Concomitant]
     Active Substance: FOLIC ACID
  3. CALCIUM + VITAMIN D3 + K2 [Concomitant]
  4. SYNTHROID [Concomitant]
     Active Substance: LEVOTHYROXINE SODIUM
  5. ANORO ELLIPTA [Concomitant]
     Active Substance: UMECLIDINIUM BROMIDE\VILANTEROL TRIFENATATE
  6. ALBUTEROL [Concomitant]
     Active Substance: ALBUTEROL
  7. URSODIOL [Concomitant]
     Active Substance: URSODIOL

REACTIONS (1)
  - Hypertension [Unknown]
